FAERS Safety Report 4939082-7 (Version None)
Quarter: 2006Q1

REPORT INFORMATION
  Report Type: 
  Country: None (occurrence: None)
  Receive Date: 20060306
  Receipt Date: 20060222
  Transmission Date: 20060701
  Serious: No
  Sender: FDA-Public Use
  Company Number: C06-021

PATIENT
  Age: 30 Year
  Sex: Female
  Weight: 91.6266 kg

DRUGS (1)
  1. PHENTERMINE [Suspect]
     Indication: OBESITY
     Dosage: 1 TABLET IN THE MORNING
     Dates: start: 20060203, end: 20060210

REACTIONS (2)
  - DRUG INEFFECTIVE [None]
  - PHARMACEUTICAL PRODUCT COMPLAINT [None]
